FAERS Safety Report 7866241-6 (Version None)
Quarter: 2011Q4

REPORT INFORMATION
  Report Type: 
  Country: None (occurrence: None)
  Receive Date: 20111028
  Receipt Date: 20110517
  Transmission Date: 20120403
  Serious: No
  Sender: FDA-Public Use
  Company Number: US-GLAXOSMITHKLINE-A0927593A

PATIENT
  Age: 66 Year
  Sex: Male

DRUGS (6)
  1. ADVAIR DISKUS 100/50 [Suspect]
     Indication: ASTHMA
     Dosage: 1PUFF TWICE PER DAY
     Route: 055
     Dates: start: 20070101
  2. LIPITOR [Concomitant]
  3. NAMENDA [Concomitant]
  4. ATENOLOL [Concomitant]
  5. PLAVIX [Concomitant]
  6. ZETIA [Concomitant]

REACTIONS (2)
  - DYSPNOEA [None]
  - PRODUCT QUALITY ISSUE [None]
